FAERS Safety Report 8022759-7 (Version None)
Quarter: 2012Q1

REPORT INFORMATION
  Report Type: 
  Country: None (occurrence: None)
  Receive Date: 20120104
  Receipt Date: 20120102
  Transmission Date: 20120608
  Serious: Yes (Hospitalization)
  Sender: FDA-Public Use
  Company Number: FR-ROCHE-1026733

PATIENT
  Sex: Male

DRUGS (4)
  1. TRAMADOL HCL [Concomitant]
     Route: 048
     Dates: start: 20110923, end: 20111024
  2. FLAGYL [Suspect]
     Indication: PRODUCT USED FOR UNKNOWN INDICATION
     Route: 048
     Dates: start: 20110923, end: 20111006
  3. ROCEPHIN [Suspect]
     Indication: PRODUCT USED FOR UNKNOWN INDICATION
     Route: 058
     Dates: start: 20110923, end: 20111006
  4. VFEND [Suspect]
     Indication: PRODUCT USED FOR UNKNOWN INDICATION
     Route: 048
     Dates: start: 20110923, end: 20111012

REACTIONS (3)
  - OEDEMA PERIPHERAL [None]
  - NAUSEA [None]
  - HEPATOTOXICITY [None]
